FAERS Safety Report 25259542 (Version 1)
Quarter: 2025Q2

REPORT INFORMATION
  Report Type: Spontaneous
  Country: US (occurrence: None)
  Receive Date: 20250430
  Receipt Date: 20250430
  Transmission Date: 20250716
  Serious: Yes (unspecified)
  Sender: FDA-CTU
  Company Number: None

PATIENT
  Age: 63 Year
  Sex: Female
  Weight: 68 kg

DRUGS (1)
  1. DOCETAXEL [Suspect]
     Active Substance: DOCETAXEL
     Indication: Breast cancer
     Dates: start: 20250416, end: 20250416

REACTIONS (3)
  - Pyrexia [None]
  - Rash [None]
  - Neuropathy peripheral [None]

NARRATIVE: CASE EVENT DATE: 20250416
